FAERS Safety Report 8910706 (Version 2)
Quarter: 2013Q1

REPORT INFORMATION
  Report Type: Spontaneous
  Country: IT (occurrence: None)
  Receive Date: 20121107
  Receipt Date: 20121203
  Transmission Date: 20140127
  Serious: Yes (Hospitalization)
  Sender: FDA-Public Use
  Company Number: 2012-1176

PATIENT
  Age: 69 Year
  Sex: 0

DRUGS (8)
  1. CARFILZOMIB [Suspect]
     Indication: PLASMA CELL MYELOMA
     Dosage: (50 MG)
     Route: 042
     Dates: start: 20120927
  2. CYCLOPHOSPHAMIDE [Suspect]
     Indication: PLASMA CELL MYELOMA
     Dates: start: 20120927
  3. DEXAMETHASONE [Suspect]
     Indication: PLASMA CELL MYELOMA
     Dosage: (20 MG)
     Route: 048
     Dates: start: 20120927
  4. ZOVIRAX (ACICLOVIR) (ACICLOVIR) [Concomitant]
  5. VESIKER (SOLIFENACIN SUCCINATE) (SOLIFENACIN SUCCINATE) [Concomitant]
  6. NICERGOLINA SANDOZ (NICERGOLINE) (NICERGOLINE) [Concomitant]
  7. CO-EFFERALOGAN (CODEINE PHOSPHATE) (CODEINE PHOSPHATE) [Concomitant]
  8. RANITIDINA (RANITIDINE HYDROCHLORIDE) (RANITIDINE HYDROCHLORIDE) [Concomitant]

REACTIONS (4)
  - Acute myocardial infarction [None]
  - Left ventricular hypertrophy [None]
  - Ventricular hypokinesia [None]
  - Coronary artery stenosis [None]
